FAERS Safety Report 4656783-9 (Version None)
Quarter: 2005Q2

REPORT INFORMATION
  Report Type: 
  Country: None (occurrence: None)
  Receive Date: 20050506
  Receipt Date: 20050421
  Transmission Date: 20051028
  Serious: Yes (Hospitalization)
  Sender: FDA-Public Use
  Company Number: 2005GB00246

PATIENT
  Age: 39 Year

DRUGS (5)
  1. CRESTOR [Suspect]
     Indication: HYPERLIPIDAEMIA
     Dosage: 10 MG DAILY PO
     Route: 048
     Dates: end: 20050120
  2. CLOPIDOGREL BISULFATE [Concomitant]
  3. ATENOLOL [Concomitant]
  4. AMLODIPINE [Concomitant]
  5. GTN [Concomitant]

REACTIONS (2)
  - SCAR [None]
  - TOXIC EPIDERMAL NECROLYSIS [None]
